FAERS Safety Report 6666853-1 (Version None)
Quarter: 2010Q2

REPORT INFORMATION
  Report Type: 
  Country: None (occurrence: None)
  Receive Date: 20100405
  Receipt Date: 20100402
  Transmission Date: 20101027
  Serious: Yes (Life-Threatening, Other)
  Sender: FDA-Public Use
  Company Number: JP-ASTRAZENECA-2010SE07438

PATIENT
  Age: 63 Year
  Sex: Female

DRUGS (1)
  1. SYMBICORT [Suspect]
     Route: 055
     Dates: start: 20100123, end: 20100131

REACTIONS (3)
  - DUODENAL ULCER [None]
  - DYSPNOEA [None]
  - GASTRITIS HAEMORRHAGIC [None]
